FAERS Safety Report 20455136 (Version 5)
Quarter: 2022Q2

REPORT INFORMATION
  Report Type: Report from Study
  Country: US (occurrence: US)
  Receive Date: 20220210
  Receipt Date: 20220407
  Transmission Date: 20220721
  Serious: Yes (Hospitalization, Other)
  Sender: FDA-Public Use
  Company Number: US-BEH-2022141638

PATIENT
  Age: 23 Year
  Sex: Male

DRUGS (4)
  1. BERINERT [Suspect]
     Active Substance: HUMAN C1-ESTERASE INHIBITOR
     Indication: Hereditary angioedema
     Dosage: UNK, BIW
     Route: 058
     Dates: start: 20220130
  2. BERINERT [Suspect]
     Active Substance: HUMAN C1-ESTERASE INHIBITOR
     Indication: Prophylaxis
     Dosage: 2000 INTERNATIONAL UNIT/KILOGRAM, BIW
     Route: 058
  3. BERINERT [Suspect]
     Active Substance: HUMAN C1-ESTERASE INHIBITOR
     Dosage: 7000 INTERNATIONAL UNIT/KILOGRAM
     Route: 058
  4. BERINERT [Suspect]
     Active Substance: HUMAN C1-ESTERASE INHIBITOR
     Dosage: 2000 INTERNATIONAL UNIT/KILOGRAM
     Route: 058
     Dates: start: 20220404, end: 20220404

REACTIONS (11)
  - Hereditary angioedema [Recovering/Resolving]
  - Product supply issue [Recovering/Resolving]
  - Therapy interrupted [Recovering/Resolving]
  - No adverse event [Unknown]
  - Product supply issue [Unknown]
  - Anxiety [Recovering/Resolving]
  - Product supply issue [Recovering/Resolving]
  - Hereditary angioedema [Unknown]
  - Gastric disorder [Unknown]
  - No adverse event [Recovering/Resolving]
  - Product supply issue [Recovering/Resolving]

NARRATIVE: CASE EVENT DATE: 20220404
